FAERS Safety Report 8413220-6 (Version None)
Quarter: 2012Q2

REPORT INFORMATION
  Report Type: 
  Country: None (occurrence: None)
  Receive Date: 20120323
  Receipt Date: 20110217
  Transmission Date: 20120825
  Serious: Yes (Other)
  Sender: FDA-Public Use
  Company Number: 163-21880-11022583

PATIENT
  Age: 75 Year
  Sex: Male

DRUGS (4)
  1. ARGININE (ARGININE) (UNKNOWN) [Concomitant]
  2. REVLIMID [Suspect]
     Indication: MULTIPLE MYELOMA
     Dosage: 25 MG, 1 IN 1 D, PO
     Route: 048
     Dates: start: 20100823
  3. LOVENOX (HEPARIN-FRACTION, SODIUM SALT) (UNKNOWN) [Concomitant]
  4. SELENIUM (SELENIUM) (UNKNOWN) [Concomitant]

REACTIONS (1)
  - THROMBOSIS [None]
